FAERS Safety Report 21080032 (Version 1)
Quarter: 2022Q3

REPORT INFORMATION
  Report Type: Other
  Country: CZ (occurrence: CZ)
  Receive Date: 20220714
  Receipt Date: 20220714
  Transmission Date: 20221027
  Serious: Yes (Other)
  Sender: FDA-Public Use
  Company Number: CZ-FreseniusKabi-FK202208515

PATIENT
  Sex: Male

DRUGS (7)
  1. BEVACIZUMAB [Suspect]
     Active Substance: BEVACIZUMAB
     Indication: Colorectal cancer metastatic
     Dosage: FOLFIRI + BEVACIZUMAB REGIMEN FOR 40 CYCLES
     Route: 065
     Dates: start: 201201, end: 201403
  2. LEUCOVORIN CALCIUM [Suspect]
     Active Substance: LEUCOVORIN CALCIUM
     Indication: Colorectal cancer metastatic
     Dosage: THE PATIENT WAS TREATED WITH THE FOLFOX REGIMEN
     Route: 065
     Dates: start: 201806, end: 201811
  3. LEUCOVORIN CALCIUM [Suspect]
     Active Substance: LEUCOVORIN CALCIUM
     Dosage: FOLFIRI + BEVACIZUMAB REGIMEN FOR 40 CYCLES
     Route: 065
     Dates: start: 201201, end: 201403
  4. IRINOTECAN [Suspect]
     Active Substance: IRINOTECAN
     Indication: Colorectal cancer metastatic
     Dosage: THE PATIENT WAS TREATED WITH THE FOLFOX REGIMEN
     Route: 065
     Dates: start: 201806, end: 201811
  5. IRINOTECAN [Suspect]
     Active Substance: IRINOTECAN
     Dosage: FOLFIRI + BEVACIZUMAB REGIMEN FOR 40 CYCLES
     Route: 065
     Dates: start: 201201, end: 201403
  6. OXALIPLATIN [Suspect]
     Active Substance: OXALIPLATIN
     Indication: Colorectal cancer metastatic
     Dosage: THE PATIENT WAS TREATED WITH THE FOLFOX REGIMEN
     Route: 065
     Dates: start: 201806, end: 201811
  7. OXALIPLATIN [Suspect]
     Active Substance: OXALIPLATIN
     Dosage: FOLFIRI + BEVACIZUMAB REGIMEN FOR 40 CYCLES
     Route: 065
     Dates: start: 201201, end: 201403

REACTIONS (3)
  - Haematotoxicity [Unknown]
  - Neurotoxicity [Unknown]
  - Diarrhoea [Unknown]
